FAERS Safety Report 8828682 (Version 1)
Quarter: 2012Q4

REPORT INFORMATION
  Report Type: Spontaneous
  Country: US (occurrence: None)
  Receive Date: 20121004
  Receipt Date: 20121004
  Transmission Date: 20130627
  Serious: No
  Sender: FDA-Public Use
  Company Number: None

PATIENT

DRUGS (2)
  1. SEPTOCAINE AND EPINEPHRINE [Suspect]
  2. POLOCAINE [Suspect]

REACTIONS (3)
  - Product physical issue [None]
  - Product quality issue [None]
  - Circumstance or information capable of leading to medication error [None]
